FAERS Safety Report 11940090 (Version 1)
Quarter: 2016Q1

REPORT INFORMATION
  Report Type: Report from Study
  Country: US (occurrence: US)
  Receive Date: 20160122
  Receipt Date: 20160122
  Transmission Date: 20160526
  Serious: Yes (Hospitalization)
  Sender: FDA-Public Use
  Company Number: US-BAUSCH-2015ST000125

PATIENT
  Age: 23 Year
  Sex: Female

DRUGS (3)
  1. RUCONEST [Suspect]
     Active Substance: HUMAN C1-ESTERASE INHIBITOR
     Indication: HEREDITARY ANGIOEDEMA
     Dosage: 2800 IU, UNK
     Route: 042
     Dates: start: 20150416
  2. RUCONEST [Suspect]
     Active Substance: HUMAN C1-ESTERASE INHIBITOR
     Dosage: UNK, AS NEEDED
     Route: 042
     Dates: start: 20160112, end: 20160112
  3. RUCONEST [Suspect]
     Active Substance: HUMAN C1-ESTERASE INHIBITOR
     Indication: ENZYME LEVEL DECREASED
     Dosage: UNK, AS NEEDED
     Route: 042
     Dates: start: 20150622, end: 20150622

REACTIONS (5)
  - Urinary tract infection [Unknown]
  - Vasodilatation [Unknown]
  - Pain [Recovered/Resolved]
  - Pancreatitis [Unknown]
  - Drug ineffective [Recovered/Resolved]

NARRATIVE: CASE EVENT DATE: 20150622
